FAERS Safety Report 12931877 (Version 8)
Quarter: 2018Q3

REPORT INFORMATION
  Report Type: Report from Study
  Country: DE (occurrence: DE)
  Receive Date: 20161111
  Receipt Date: 20180904
  Transmission Date: 20181010
  Serious: Yes (Hospitalization)
  Sender: FDA-Public Use
  Company Number: DE-ROCHE-1853231

PATIENT
  Age: 66 Year
  Sex: Male

DRUGS (4)
  1. PREDNISOLON [Concomitant]
     Active Substance: PREDNISOLONE
     Dosage: DAYS
     Route: 065
  2. ESBRIET [Suspect]
     Active Substance: PIRFENIDONE
     Indication: IDIOPATHIC PULMONARY FIBROSIS
     Dosage: 3 CAPSULES
     Route: 048
     Dates: start: 20140208
  3. CORTISONE [Concomitant]
     Active Substance: CORTISONE\HYDROCORTISONE
     Route: 065
  4. OXYGEN. [Concomitant]
     Active Substance: OXYGEN
     Dosage: 1?4 L, MINUTES, 6 L DAYS
     Route: 065

REACTIONS (10)
  - Bronchitis [Recovered/Resolved]
  - Infection [Recovering/Resolving]
  - Nasopharyngitis [Recovering/Resolving]
  - Pulmonary congestion [Recovering/Resolving]
  - Pneumonitis [Not Recovered/Not Resolved]
  - Bronchial secretion retention [Recovering/Resolving]
  - Dyspnoea exertional [Not Recovered/Not Resolved]
  - Dyspnoea [Recovering/Resolving]
  - General physical health deterioration [Unknown]
  - Productive cough [Not Recovered/Not Resolved]

NARRATIVE: CASE EVENT DATE: 201610
